FAERS Safety Report 13035892 (Version 4)
Quarter: 2017Q3

REPORT INFORMATION
  Report Type: Spontaneous
  Country: US (occurrence: US)
  Receive Date: 20161216
  Receipt Date: 20170904
  Transmission Date: 20171127
  Serious: No
  Sender: FDA-Public Use
  Company Number: US-PFIZER INC-2016582492

PATIENT
  Age: 82 Year
  Sex: Female
  Weight: 86.18 kg

DRUGS (1)
  1. REVATIO [Suspect]
     Active Substance: SILDENAFIL CITRATE
     Indication: RIGHT VENTRICULAR FAILURE
     Dosage: 20 MG, 3X/DAY
     Route: 048
     Dates: start: 2014

REACTIONS (3)
  - Product use in unapproved indication [Unknown]
  - Tremor [Unknown]
  - Pre-existing condition improved [Unknown]
